FAERS Safety Report 5764120-1 (Version None)
Quarter: 2008Q2

REPORT INFORMATION
  Report Type: 
  Country: None (occurrence: None)
  Receive Date: 20080604
  Receipt Date: 20080526
  Transmission Date: 20081010
  Serious: Yes (Congenital Anomaly)
  Sender: FDA-Public Use
  Company Number: GXKR2008US04744

PATIENT
  Sex: Female

DRUGS (6)
  1. MYCOPHENOLATE MOFETIL [Suspect]
     Dosage: , TRANSPLACENTAL
     Route: 064
  2. PREDNISONE [Suspect]
     Dosage: , TRANSPLACENTAL
     Route: 064
  3. TACROLIMUS [Suspect]
     Dosage: , TRANSPLACENTAL
     Route: 064
  4. ANTIBACTERIALS FOR SYSTEMIC USE (NO INGREDIENTS/SUBSTANCES) UNKNOWN [Concomitant]
  5. FOLIC ACID (FOLIC ACID) UNKNOWN [Concomitant]
  6. VITAMINS (NO INGREDIENTS/SUBSTANCES) UNKNOWN [Concomitant]

REACTIONS (12)
  - CATARACT CONGENITAL [None]
  - CLEFT LIP AND PALATE [None]
  - DOUBLE OUTLET RIGHT VENTRICLE [None]
  - DRUG EXPOSURE DURING PREGNANCY [None]
  - HEART DISEASE CONGENITAL [None]
  - INTESTINAL MALROTATION [None]
  - LIMB MALFORMATION [None]
  - MATERNAL DRUGS AFFECTING FOETUS [None]
  - MICROPHTHALMOS [None]
  - MICROTIA [None]
  - MULTIPLE CONGENITAL ABNORMALITIES [None]
  - RIB DEFORMITY [None]
